FAERS Safety Report 7300823-5 (Version None)
Quarter: 2011Q1

REPORT INFORMATION
  Report Type: 
  Country: None (occurrence: None)
  Receive Date: 20110103
  Receipt Date: 20091020
  Transmission Date: 20110831
  Serious: Yes (Hospitalization)
  Sender: FDA-Public Use
  Company Number: US-003602

PATIENT
  Age: 73 Year
  Sex: Female
  Weight: 64 kg

DRUGS (6)
  1. LISINOPRIL [Concomitant]
  2. OXYGEN (OXYGEN) [Concomitant]
  3. NASONEX [Concomitant]
  4. ADVAIR DISKUS 100/50 [Concomitant]
  5. MULTIHANCE [Suspect]
     Indication: NUCLEAR MAGNETIC RESONANCE IMAGING
     Dosage: 13ML ONCE INTRAVENOUS
     Route: 042
     Dates: start: 20091020, end: 20091020
  6. MULTIHANCE [Suspect]
     Indication: LOWER EXTREMITY MASS
     Dosage: 13ML ONCE INTRAVENOUS
     Route: 042
     Dates: start: 20091020, end: 20091020

REACTIONS (1)
  - HYPERSENSITIVITY [None]
